FAERS Safety Report 6196310-0 (Version None)
Quarter: 2009Q2

REPORT INFORMATION
  Report Type: 
  Country: None (occurrence: None)
  Receive Date: 20090520
  Receipt Date: 20090508
  Transmission Date: 20091009
  Serious: Yes (Hospitalization)
  Sender: FDA-Public Use
  Company Number: DE-PFIZER INC-2009202902

PATIENT
  Age: 64 Year

DRUGS (1)
  1. LYRICA [Suspect]
     Indication: GENERALISED ANXIETY DISORDER
     Dosage: UNK
     Route: 048
     Dates: start: 20090331, end: 20090408

REACTIONS (3)
  - PALMAR ERYTHEMA [None]
  - PRURITUS [None]
  - SKIN DISCOLOURATION [None]
